FAERS Safety Report 10193512 (Version 1)
Quarter: 2014Q2

REPORT INFORMATION
  Report Type: Spontaneous
  Country: US (occurrence: US)
  Receive Date: 20140524
  Receipt Date: 20140524
  Transmission Date: 20141212
  Serious: No
  Sender: FDA-Public Use
  Company Number: US-SA-2014SA005448

PATIENT
  Age: 55 Year
  Sex: Male

DRUGS (1)
  1. LANTUS [Suspect]
     Indication: DIABETES MELLITUS
     Dosage: DOSE-20 UNITS TWO TIMES DAY AS NEEDED DOSE:20 UNIT(S)
     Route: 051
     Dates: start: 20130515

REACTIONS (2)
  - Hypoaesthesia [Unknown]
  - Malaise [Unknown]
